FAERS Safety Report 8279687-1 (Version None)
Quarter: 2012Q2

REPORT INFORMATION
  Report Type: 
  Country: None (occurrence: None)
  Receive Date: 20120412
  Receipt Date: 20110815
  Transmission Date: 20120825
  Serious: Yes (Hospitalization)
  Sender: FDA-Public Use
  Company Number: US-ASTRAZENECA-2011SE48516

PATIENT
  Age: 45 Year
  Sex: Female
  Weight: 63.5 kg

DRUGS (3)
  1. INSULIN [Concomitant]
     Indication: DIABETES MELLITUS
     Route: 058
  2. CALCITRIOL [Concomitant]
     Indication: OSTEOPOROSIS
     Route: 048
  3. NEXIUM [Suspect]
     Indication: RENAL TRANSPLANT
     Route: 048
     Dates: start: 20070701

REACTIONS (2)
  - FIBULA FRACTURE [None]
  - TIBIA FRACTURE [None]
